FAERS Safety Report 8905184 (Version 1)
Quarter: 2012Q4

REPORT INFORMATION
  Report Type: 
  Country: MT (occurrence: MT)
  Receive Date: 20121113
  Receipt Date: 20121113
  Transmission Date: 20130627
  Serious: Yes (Other)
  Sender: FDA-Public Use
  Company Number: MT-009507513-1211MLT004797

PATIENT
  Age: 86 Year
  Sex: Female

DRUGS (1)
  1. INVANZ [Suspect]
     Indication: KLEBSIELLA INFECTION
     Dosage: 1 g, infused for30 minutes daily for 3 days
     Route: 042

REACTIONS (3)
  - Metabolic encephalopathy [Recovered/Resolved]
  - Convulsion [Recovered/Resolved]
  - Muscle twitching [Recovered/Resolved]
